FAERS Safety Report 6264380-7 (Version None)
Quarter: 2009Q3

REPORT INFORMATION
  Report Type: 
  Country: None (occurrence: None)
  Receive Date: 20090710
  Receipt Date: 20090703
  Transmission Date: 20100115
  Serious: Yes (Hospitalization)
  Sender: FDA-Public Use
  Company Number: B0579124A

PATIENT
  Sex: Female
  Weight: 110 kg

DRUGS (1)
  1. ARIXTRA [Suspect]
     Indication: JUGULAR VEIN THROMBOSIS
     Dosage: 10MG PER DAY
     Route: 058
     Dates: start: 20090401, end: 20090505

REACTIONS (1)
  - SKIN ULCER [None]
